FAERS Safety Report 12145985 (Version 1)
Quarter: 2016Q1

REPORT INFORMATION
  Report Type: Report from Study
  Country: ZA (occurrence: ZA)
  Receive Date: 20160303
  Receipt Date: 20160303
  Transmission Date: 20160526
  Serious: Yes (Death, Other)
  Sender: FDA-Public Use
  Company Number: ZA-AMGEN-ZAFSL2016024762

PATIENT
  Age: 59 Year
  Sex: Male

DRUGS (1)
  1. ARANESP [Suspect]
     Active Substance: DARBEPOETIN ALFA
     Indication: CHRONIC KIDNEY DISEASE
     Dosage: 40 MCG, QWK
     Route: 058
     Dates: start: 201405, end: 201507

REACTIONS (1)
  - Death [Fatal]

NARRATIVE: CASE EVENT DATE: 20150728
